FAERS Safety Report 19330631 (Version 1)
Quarter: 2021Q2

REPORT INFORMATION
  Report Type: Spontaneous
  Country: IN (occurrence: IN)
  Receive Date: 20210528
  Receipt Date: 20210528
  Transmission Date: 20210717
  Serious: Yes (Other)
  Sender: FDA-Public Use
  Company Number: IN-JUBILANT PHARMA LTD-2021IN000464

PATIENT
  Age: 25 Year
  Sex: Male

DRUGS (3)
  1. CARBIMAZOLE [Suspect]
     Active Substance: CARBIMAZOLE
     Indication: HYPERTHYROIDISM
     Dosage: 5 MG, ONCE PER DAY
  2. SODIUM IODIDE I?131. [Suspect]
     Active Substance: SODIUM IODIDE I-131
     Indication: HYPERTHYROIDISM
     Dosage: UNK, SINGLE DOSE
  3. PROPRANOLOL [Suspect]
     Active Substance: PROPRANOLOL HYDROCHLORIDE
     Indication: HYPERTHYROIDISM
     Dosage: 20 MG, ONCE PER DAY

REACTIONS (3)
  - Neurotrophic keratopathy [Recovered/Resolved]
  - Post procedural hypothyroidism [Recovered/Resolved]
  - Herpes zoster reactivation [Recovered/Resolved]
